FAERS Safety Report 9379942 (Version 2)
Quarter: 2013Q3

REPORT INFORMATION
  Report Type: Report from Study
  Country: MX (occurrence: MX)
  Receive Date: 20130702
  Receipt Date: 20130815
  Transmission Date: 20140515
  Serious: Yes (Disabling)
  Sender: FDA-Public Use
  Company Number: PHHY2013MX067619

PATIENT
  Age: 54 Year
  Sex: Female

DRUGS (1)
  1. STALEVO [Suspect]
     Indication: PARKINSON^S DISEASE
     Dosage: 0.5 DF, Q8H
     Route: 048
     Dates: start: 20130628, end: 20130708

REACTIONS (7)
  - Abasia [Unknown]
  - Dysstasia [Recovered/Resolved]
  - Asthenia [Unknown]
  - Musculoskeletal stiffness [Recovered/Resolved]
  - Pain in extremity [Recovered/Resolved]
  - Muscle spasms [Recovered/Resolved]
  - Wrong technique in drug usage process [Unknown]
